FAERS Safety Report 7132899-2 (Version None)
Quarter: 2010Q4

REPORT INFORMATION
  Report Type: 
  Country: None (occurrence: None)
  Receive Date: 20101202
  Receipt Date: 20101123
  Transmission Date: 20110411
  Serious: No
  Sender: FDA-Public Use
  Company Number: US-PFIZER INC-US-WYE-H17618710

PATIENT
  Sex: Male
  Weight: 68 kg

DRUGS (2)
  1. PROTONIX [Suspect]
     Indication: GASTROOESOPHAGEAL REFLUX DISEASE
     Dosage: 40 MG, 1X/DAY
     Route: 065
  2. PROTONIX [Suspect]
     Indication: HYPERCHLORHYDRIA

REACTIONS (1)
  - HYPERTENSION [None]
